FAERS Safety Report 10222537 (Version 1)
Quarter: 2014Q2

REPORT INFORMATION
  Report Type: Spontaneous
  Country: US (occurrence: US)
  Receive Date: 20140606
  Receipt Date: 20140606
  Transmission Date: 20141212
  Serious: No
  Sender: FDA-Public Use
  Company Number: US-BAXTER-2014BAX026187

PATIENT
  Age: 42 Year
  Sex: Female

DRUGS (1)
  1. LACTATED RINGER^S INJECTION, USP [Suspect]
     Indication: PREOPERATIVE CARE
     Dosage: 1/4 BAG INFUSED
     Route: 042
     Dates: start: 20140521, end: 20140521

REACTIONS (1)
  - Blood glucose increased [Recovered/Resolved]
